FAERS Safety Report 8524905-5 (Version None)
Quarter: 2012Q3

REPORT INFORMATION
  Report Type: 
  Country: None (occurrence: None)
  Receive Date: 20120720
  Receipt Date: 20120712
  Transmission Date: 20120928
  Serious: Yes (Hospitalization, Other)
  Sender: FDA-Public Use
  Company Number: US-ASTRAZENECA-2011SE32254

PATIENT
  Age: 54 Year
  Sex: Female
  Weight: 118.8 kg

DRUGS (67)
  1. NEXIUM [Suspect]
     Route: 048
     Dates: start: 20090223
  2. NEXIUM [Suspect]
     Route: 048
     Dates: start: 20090605
  3. NEXIUM [Suspect]
     Route: 048
     Dates: start: 20100322
  4. TOPROL-XL [Concomitant]
     Dates: start: 20110504
  5. VITAMIN B COMPLEX CAP [Concomitant]
     Dates: start: 20110504
  6. NEXIUM [Suspect]
     Route: 048
     Dates: start: 20090801, end: 20110401
  7. NEXIUM [Suspect]
     Route: 048
     Dates: start: 20100507
  8. PROZAC [Concomitant]
     Indication: EMOTIONAL DISTRESS
     Dates: start: 20090506
  9. PROZAC [Concomitant]
     Dates: start: 20100315
  10. PROZAC [Concomitant]
     Dates: start: 20110504
  11. LOVAZA [Concomitant]
     Dates: start: 20110504
  12. MIRAPEX [Concomitant]
     Dates: start: 20100315
  13. HYDROCODONE BITARTRATE [Concomitant]
     Dosage: 5/500 MG TAKEN WHEN NEEDED
     Dates: start: 20110504
  14. CELEBREX [Concomitant]
     Dates: start: 20090223
  15. NEXIUM [Suspect]
     Route: 048
     Dates: start: 20080724
  16. PROZAC [Concomitant]
     Dates: start: 20090223
  17. BONIVA [Concomitant]
     Dates: start: 20090223
  18. MIRAPEX [Concomitant]
     Dates: start: 20101026
  19. HYDROCODONE BITARTRATE [Concomitant]
     Dosage: 5 MG/500 MG
     Dates: start: 20090223
  20. MULTI-VITAMIN [Concomitant]
  21. LASIX [Concomitant]
     Dates: start: 20110504
  22. NEXIUM [Suspect]
     Route: 048
     Dates: start: 20090605
  23. NEXIUM [Suspect]
     Route: 048
     Dates: start: 20100322
  24. TOPROL-XL [Concomitant]
     Dates: start: 20080724
  25. CLONAZEPAM [Concomitant]
     Indication: EMOTIONAL DISTRESS
  26. CLONAZEPAM [Concomitant]
     Dosage: 1 MG TAKEN WHEN NEEDED
     Dates: start: 20110504
  27. LOVAZA [Concomitant]
     Dates: start: 20100315
  28. MIRAPEX [Concomitant]
     Dates: start: 20110504
  29. CELEBREX [Concomitant]
     Dates: start: 20090605
  30. NEXIUM [Suspect]
     Indication: GASTROOESOPHAGEAL REFLUX DISEASE
     Route: 048
     Dates: start: 20080307
  31. NEXIUM [Suspect]
     Route: 048
     Dates: start: 20080724
  32. PROZAC [Concomitant]
     Dates: start: 20080724
  33. MAXZIDE [Concomitant]
     Dates: start: 20110504
  34. LOVAZA [Concomitant]
     Dates: start: 20080724
  35. HYDROCODONE BITARTRATE [Concomitant]
     Dates: start: 20100315
  36. NEXIUM [Suspect]
     Route: 048
     Dates: start: 20110504
  37. TOPROL-XL [Concomitant]
     Indication: HYPERTENSION
  38. TOPROL-XL [Concomitant]
     Dates: start: 20090223
  39. TOPROL-XL [Concomitant]
     Dates: start: 20100315
  40. ROLAIDS [Concomitant]
  41. BONIVA [Concomitant]
     Indication: OSTEOPOROSIS
     Dates: start: 20101026
  42. BONIVA [Concomitant]
     Dosage: ONCE A MONTH
     Dates: start: 20110504
  43. MAXZIDE [Concomitant]
     Dates: start: 20090605
  44. MAXZIDE [Concomitant]
     Dates: start: 20090223
  45. LOVAZA [Concomitant]
     Dates: start: 20090223
  46. NEXIUM [Suspect]
     Indication: DYSPEPSIA
     Route: 048
     Dates: start: 20080307
  47. NEXIUM [Suspect]
     Route: 048
     Dates: start: 20090223
  48. ALPRAZOLAM [Concomitant]
     Route: 048
     Dates: start: 20100317
  49. PEPCID [Concomitant]
  50. MIRAPEX [Concomitant]
     Dates: start: 20090223
  51. GARLIC [Concomitant]
     Dosage: ONE A DAY
     Dates: start: 20090506
  52. CELEBREX [Concomitant]
     Dates: start: 20080724
  53. CELEBREX [Concomitant]
     Dates: start: 20110504
  54. VICODIN [Concomitant]
     Dosage: TQD FOR (30) NR
     Dates: start: 20080724
  55. LASIX [Concomitant]
     Dates: start: 20110321
  56. DIAZEPAM [Concomitant]
     Indication: ANXIETY
     Dates: start: 20110504
  57. NEXIUM [Suspect]
     Route: 048
     Dates: start: 20090801, end: 20110401
  58. NEXIUM [Suspect]
     Route: 048
     Dates: start: 20100507
  59. NEXIUM [Suspect]
     Route: 048
     Dates: start: 20110504
  60. ASPIRIN [Concomitant]
  61. ASPIRIN [Concomitant]
     Dates: start: 20090223
  62. ASPIRIN [Concomitant]
     Dates: start: 20110504
  63. MAXZIDE [Concomitant]
     Dosage: 75 MG 1/2 TAB DAILY
     Dates: start: 20100322
  64. MAXZIDE [Concomitant]
     Dates: start: 20080724
  65. LOVAZA [Concomitant]
     Dates: start: 20101026
  66. HYDROCODONE BITARTRATE [Concomitant]
     Dates: start: 20101026
  67. CALCIUM WITH VITAMIN D [Concomitant]
     Dates: start: 20110504

REACTIONS (11)
  - HAND FRACTURE [None]
  - NECK PAIN [None]
  - OSTEOARTHRITIS [None]
  - OSTEOPOROSIS [None]
  - INTERVERTEBRAL DISC PROTRUSION [None]
  - BONE DISORDER [None]
  - BONE FORMATION DECREASED [None]
  - INTERVERTEBRAL DISC DEGENERATION [None]
  - SPINAL OSTEOARTHRITIS [None]
  - JOINT DISLOCATION [None]
  - ARTHRITIS [None]
